FAERS Safety Report 20419551 (Version 1)
Quarter: 2022Q1

REPORT INFORMATION
  Report Type: Report from Study
  Country: US (occurrence: US)
  Receive Date: 20220203
  Receipt Date: 20220203
  Transmission Date: 20220423
  Serious: Yes (Hospitalization)
  Sender: FDA-Public Use
  Company Number: US-TEVA-2022-US-2003240

PATIENT
  Age: 60 Year
  Sex: Female

DRUGS (2)
  1. ALLOPURINOL [Suspect]
     Active Substance: ALLOPURINOL
     Indication: Gout
     Route: 065
  2. ROSIGLITAZONE [Suspect]
     Active Substance: ROSIGLITAZONE
     Indication: Diabetes mellitus
     Route: 065

REACTIONS (5)
  - Hepatotoxicity [Unknown]
  - Toxicity to various agents [Unknown]
  - Hypersensitivity [Unknown]
  - Drug reaction with eosinophilia and systemic symptoms [Unknown]
  - Drug hypersensitivity [Unknown]
